FAERS Safety Report 17273603 (Version 2)
Quarter: 2020Q1

REPORT INFORMATION
  Report Type: Spontaneous
  Country: US (occurrence: US)
  Receive Date: 20200115
  Receipt Date: 20200128
  Transmission Date: 20200409
  Serious: Yes (Other)
  Sender: FDA-Public Use
  Company Number: US-PFIZER INC-2019553257

PATIENT
  Age: 58 Year
  Sex: Male
  Weight: 64 kg

DRUGS (1)
  1. CELEBREX [Suspect]
     Active Substance: CELECOXIB
     Dosage: 200 MG, 2X/DAY (1 PO (PER ORAL) Q (EVERY) 12 HOURS)
     Route: 048

REACTIONS (3)
  - Pancytopenia [Unknown]
  - Adult T-cell lymphoma/leukaemia [Unknown]
  - Impaired work ability [Unknown]

NARRATIVE: CASE EVENT DATE: 201209
